FAERS Safety Report 12974362 (Version 2)
Quarter: 2016Q4

REPORT INFORMATION
  Report Type: Spontaneous
  Country: US (occurrence: US)
  Receive Date: 20161125
  Receipt Date: 20161221
  Transmission Date: 20170207
  Serious: No
  Sender: FDA-Public Use
  Company Number: US-009507513-1611USA012159

PATIENT
  Sex: Female
  Weight: 141.4 kg

DRUGS (1)
  1. NEXPLANON [Suspect]
     Active Substance: ETONOGESTREL
     Indication: CONTRACEPTION
     Dosage: 1 IMPLANT / 3 YEARS
     Route: 059
     Dates: end: 20161122

REACTIONS (2)
  - Implant site pain [Unknown]
  - Device breakage [Recovered/Resolved]
